FAERS Safety Report 5987066-2 (Version None)
Quarter: 2008Q4

REPORT INFORMATION
  Report Type: 
  Country: None (occurrence: None)
  Receive Date: 20081209
  Receipt Date: 20080110
  Transmission Date: 20090506
  Serious: No
  Sender: FDA-Public Use
  Company Number: A0702438A

PATIENT
  Sex: Female

DRUGS (2)
  1. AVANDAMET [Suspect]
     Indication: DRUG USE FOR UNKNOWN INDICATION
     Route: 048
  2. NO CONCURRENT MEDICATION [Concomitant]

REACTIONS (2)
  - INSOMNIA [None]
  - OVERDOSE [None]
